FAERS Safety Report 7579992-8 (Version None)
Quarter: 2011Q2

REPORT INFORMATION
  Report Type: 
  Country: None (occurrence: None)
  Receive Date: 20110629
  Receipt Date: 20110620
  Transmission Date: 20111010
  Serious: Yes (Hospitalization, Other)
  Sender: FDA-Public Use
  Company Number: US-BRISTOL-MYERS SQUIBB COMPANY-15843089

PATIENT
  Age: 17 Year
  Sex: Female

DRUGS (5)
  1. METHOTREXATE [Suspect]
  2. VINCRISTINE [Suspect]
  3. ETOPOSIDE [Suspect]
  4. DACTINOMYCIN [Suspect]
  5. CYCLOPHOSPHAMIDE [Suspect]

REACTIONS (6)
  - TUMOUR LYSIS SYNDROME [None]
  - FUNGAEMIA [None]
  - OESOPHAGITIS [None]
  - DEEP VEIN THROMBOSIS [None]
  - UPPER GASTROINTESTINAL HAEMORRHAGE [None]
  - CARDIAC FAILURE CONGESTIVE [None]
